FAERS Safety Report 10155422 (Version 1)
Quarter: 2014Q2

REPORT INFORMATION
  Report Type: Spontaneous
  Country: US (occurrence: None)
  Receive Date: 20140421
  Receipt Date: 20140421
  Transmission Date: 20141212
  Serious: No
  Sender: FDA-Public Use
  Company Number: AEGR000038

PATIENT
  Age: 56 Year
  Sex: Female
  Weight: 90.7 kg

DRUGS (8)
  1. JUXTAPID (LOMITAPIDE) CAPSULE, 5MG [Suspect]
     Indication: TYPE IIA HYPERLIPIDAEMIA
     Route: 048
     Dates: start: 20130301
  2. NIASPAN (NICOTINIC ACID) TABLET [Concomitant]
  3. WELCHOL (COLESEVELAM HYDROCHLORIDE) TABLET [Concomitant]
  4. METOPROLOL TARTRATE (METOPROLOL TARTARTE TABLET [Concomitant]
  5. TRILIPIX (CHOLINE FENOFIBRATE) TABLET [Concomitant]
  6. ZETIA (EZETIMIBE) TABLET [Concomitant]
  7. LIPITOR (ATORVASTATIN CALCIUM) TABLET? [Concomitant]
  8. EFFIENT (PRASUGREL HYDROCHLORIDE) TABLET [Concomitant]

REACTIONS (3)
  - Haematuria [None]
  - Diarrhoea [None]
  - Weight decreased [None]
